FAERS Safety Report 9816687 (Version 11)
Quarter: 2015Q2

REPORT INFORMATION
  Report Type: Report from Study
  Country: JP (occurrence: JP)
  Receive Date: 20140114
  Receipt Date: 20150626
  Transmission Date: 20150821
  Serious: Yes (Hospitalization, Other)
  Sender: FDA-Public Use
  Company Number: JP-UCBSA-108814

PATIENT
  Age: 71 Year
  Sex: Male
  Weight: 57.1 kg

DRUGS (13)
  1. PROGRAF [Concomitant]
     Active Substance: TACROLIMUS\TACROLIMUS ANHYDROUS
     Indication: RHEUMATOID ARTHRITIS
     Dosage: 4 MG/DAY
     Route: 048
     Dates: start: 200311
  2. CERTOLIZUMAB PEGOL RA [Suspect]
     Active Substance: CERTOLIZUMAB PEGOL
     Indication: RHEUMATOID ARTHRITIS
     Dosage: 200 MG, EV 2 WEEKS(QOW)
     Route: 058
     Dates: start: 20090511, end: 20130430
  3. CERTOLIZUMAB PEGOL RA [Suspect]
     Active Substance: CERTOLIZUMAB PEGOL
     Dosage: 200 MG, ONCE DAILY (QD)
     Route: 058
     Dates: start: 20130514, end: 20130514
  4. RESTAMIN CORTISONE [Concomitant]
     Indication: ASTEATOSIS
     Dosage: ADEQUATE DOSE
     Route: 062
     Dates: start: 20100805
  5. PROGRAF [Concomitant]
     Active Substance: TACROLIMUS\TACROLIMUS ANHYDROUS
     Dosage: 1.5 MG, 2X/DAY (BID)
     Route: 048
     Dates: start: 20120502
  6. INTEBAN [Concomitant]
     Active Substance: INDOMETHACIN
     Indication: RHEUMATOID ARTHRITIS
     Dosage: UNK UNK, AS NEEDED (PRN)
     Route: 062
     Dates: start: 20111114
  7. LAMISIL [Concomitant]
     Active Substance: TERBINAFINE HYDROCHLORIDE
     Indication: TINEA PEDIS
     Dosage: ADEQUATE DOSE
     Route: 062
  8. PREDONINE [Concomitant]
     Active Substance: PREDNISOLONE\PREDNISOLONE ACETATE\PREDNISOLONE SODIUM SUCCINATE
     Indication: CONJUNCTIVITIS ALLERGIC
     Route: 047
     Dates: start: 20120723
  9. VOLTAREN [Concomitant]
     Active Substance: DICLOFENAC SODIUM
     Indication: RHEUMATOID ARTHRITIS
     Dosage: 37.5 MG, AS NEEDED (PRN)
     Route: 048
     Dates: start: 20120803
  10. LIVOSTIN [Concomitant]
     Active Substance: LEVOCABASTINE HYDROCHLORIDE
     Indication: CONJUNCTIVITIS ALLERGIC
     Route: 047
     Dates: start: 20110405
  11. LOXONIN [Concomitant]
     Active Substance: LOXOPROFEN SODIUM
     Indication: RHEUMATOID ARTHRITIS
     Dosage: ADEQUATE DOSE; FREQUENCY: X1/DAY ~X2/DAY
     Route: 062
     Dates: start: 20130708
  12. CATLEP [Concomitant]
     Active Substance: INDOMETHACIN
     Indication: RHEUMATOID ARTHRITIS
     Dosage: UNK UNK, AS NEEDED (PRN)
     Route: 062
     Dates: start: 20100906
  13. NIZORAL [Concomitant]
     Active Substance: KETOCONAZOLE
     Indication: TINEA PEDIS
     Dosage: ADEQUATE DOSE
     Route: 062

REACTIONS (2)
  - Renal cancer [Recovering/Resolving]
  - Squamous cell carcinoma of skin [Recovering/Resolving]

NARRATIVE: CASE EVENT DATE: 20131211
